FAERS Safety Report 10416897 (Version 1)
Quarter: 2014Q3

REPORT INFORMATION
  Report Type: Spontaneous
  Country: US (occurrence: US)
  Receive Date: 20140828
  Receipt Date: 20140828
  Transmission Date: 20150326
  Serious: Yes (Hospitalization)
  Sender: FDA-Public Use
  Company Number: US-EISAI INC-E2020-14448-SPO-US

PATIENT
  Age: 67 Year
  Sex: Male

DRUGS (2)
  1. DONEPEZIL [Suspect]
     Active Substance: DONEPEZIL
     Dosage: 290 MG
     Route: 048
  2. DONEPEZIL [Suspect]
     Active Substance: DONEPEZIL
     Indication: PRODUCT USED FOR UNKNOWN INDICATION
     Dosage: UNKNOWN
     Route: 048

REACTIONS (6)
  - Vomiting [Unknown]
  - Intentional overdose [Unknown]
  - Hyperhidrosis [Unknown]
  - Hypertension [Not Recovered/Not Resolved]
  - Suicide attempt [Recovered/Resolved]
  - Bradycardia [Recovered/Resolved]
